FAERS Safety Report 4833059-8 (Version None)
Quarter: 2005Q4

REPORT INFORMATION
  Report Type: 
  Country: None (occurrence: None)
  Receive Date: 20051121
  Receipt Date: 20051110
  Transmission Date: 20060501
  Serious: Yes (Death, Hospitalization)
  Sender: FDA-Public Use
  Company Number: ES-ROCHE-424475

PATIENT
  Age: 49 Year
  Sex: Female

DRUGS (1)
  1. CAPECITABINE [Suspect]
     Indication: BREAST CANCER
     Dosage: DOSE REPORTED AS '3600' NO UNITS PROVIDED.
     Route: 048
     Dates: start: 20050815

REACTIONS (3)
  - HAEMATEMESIS [None]
  - MALIGNANT NEOPLASM PROGRESSION [None]
  - NEOPLASM MALIGNANT [None]
